FAERS Safety Report 5731579-5 (Version None)
Quarter: 2008Q2

REPORT INFORMATION
  Report Type: 
  Country: None (occurrence: None)
  Receive Date: 20080506
  Receipt Date: 20080506
  Transmission Date: 20081010
  Serious: Yes (Other)
  Sender: FDA-Public Use
  Company Number: None

PATIENT
  Age: 65 Year
  Sex: Female
  Weight: 40.3701 kg

DRUGS (2)
  1. CRESTOR [Suspect]
     Indication: HYPERTENSION
     Dosage: 10 MG IN THE MORNING, ONCE A DAY, PO
     Route: 048
     Dates: start: 20080412, end: 20080417
  2. PRAVASTATIN [Suspect]
     Indication: HYPERTENSION
     Dosage: 40 MG AT BEDTIME, ONCE A DAY, PO
     Route: 048
     Dates: start: 20080418, end: 20080424

REACTIONS (3)
  - ATRIAL FIBRILLATION [None]
  - MUSCULOSKELETAL STIFFNESS [None]
  - PAIN [None]
